FAERS Safety Report 7759740-9 (Version None)
Quarter: 2011Q3

REPORT INFORMATION
  Report Type: 
  Country: None (occurrence: None)
  Receive Date: 20110919
  Receipt Date: 20110913
  Transmission Date: 20111222
  Serious: Yes (Other)
  Sender: FDA-Public Use
  Company Number: US-AMGEN-USASP2011046872

PATIENT
  Sex: Female

DRUGS (3)
  1. ENBREL [Suspect]
     Indication: RHEUMATOID ARTHRITIS
     Dosage: 25 MG, 2 TIMES/WK
     Dates: start: 20030101
  2. STEROID ANTIBACTERIALS [Suspect]
  3. TREXALL [Concomitant]
     Dates: start: 20110401

REACTIONS (2)
  - INJECTION SITE ERYTHEMA [None]
  - EYE DISORDER [None]
